FAERS Safety Report 7226938 (Version 6)
Quarter: 2013Q2

REPORT INFORMATION
  Report Type: Spontaneous
  Country: US (occurrence: US)
  Receive Date: 20091222
  Receipt Date: 20130425
  Transmission Date: 20140414
  Serious: Yes (Other)
  Sender: FDA-Public Use
  Company Number: US-ASTRAZENECA-2009UW04135

PATIENT
  Age: 83 Year
  Sex: Female
  Weight: 70.8 kg

DRUGS (9)
  1. PRILOSEC [Suspect]
     Route: 048
  2. CRESTOR [Suspect]
     Route: 048
  3. CRESTOR [Suspect]
     Route: 048
  4. NEXIUM [Suspect]
     Route: 048
  5. PREDISONE [Suspect]
     Route: 065
  6. PRAVACHOL [Concomitant]
  7. CORTISONE [Concomitant]
  8. METHOTREXATE [Concomitant]
  9. TUMS [Concomitant]

REACTIONS (10)
  - Basal cell carcinoma [Unknown]
  - Escherichia infection [Unknown]
  - Gastrooesophageal reflux disease [Unknown]
  - Skin discolouration [Unknown]
  - Back pain [Unknown]
  - Adverse event [Unknown]
  - Hypertension [Unknown]
  - Skin atrophy [Unknown]
  - Coeliac disease [Unknown]
  - Musculoskeletal pain [Unknown]
